FAERS Safety Report 25992271 (Version 1)
Quarter: 2025Q4

REPORT INFORMATION
  Report Type: Spontaneous
  Country: US (occurrence: US)
  Receive Date: 20251103
  Receipt Date: 20251103
  Transmission Date: 20260117
  Serious: No
  Sender: SANOFI AVENTIS
  Company Number: US-SA-2025SA321449

PATIENT
  Sex: Female
  Weight: 109.23 kg

DRUGS (41)
  1. DUPIXENT [Suspect]
     Active Substance: DUPILUMAB
     Indication: Asthma
     Dosage: 600 MG, 1X
     Route: 058
  2. DUPIXENT [Suspect]
     Active Substance: DUPILUMAB
     Dosage: 300 MG, QOW
     Route: 058
  3. METHOCARBAMOL [Concomitant]
     Active Substance: METHOCARBAMOL
     Dosage: UNK
  4. UBRELVY [Concomitant]
     Active Substance: UBROGEPANT
  5. VENTOLIN HFA [Concomitant]
     Active Substance: ALBUTEROL SULFATE
  6. BREZTRI [Concomitant]
     Active Substance: BUDESONIDE\FORMOTEROL\GLYCOPYRROLATE
  7. TOBRAMYCIN [Concomitant]
     Active Substance: TOBRAMYCIN
  8. PROMETHAZINE HYDROCHLORIDE [Concomitant]
     Active Substance: PROMETHAZINE HYDROCHLORIDE
  9. SODIUM CHLORIDE [Concomitant]
     Active Substance: SODIUM CHLORIDE
  10. PROGESTERONE [Concomitant]
     Active Substance: PROGESTERONE
  11. SUNOSI [Concomitant]
     Active Substance: SOLRIAMFETOL
  12. TIZANIDINE HYDROCHLORIDE [Concomitant]
     Active Substance: TIZANIDINE HYDROCHLORIDE
  13. QULIPTA [Concomitant]
     Active Substance: ATOGEPANT
  14. MEMANTINE [Concomitant]
     Active Substance: MEMANTINE
  15. ONDANSETRON [Concomitant]
     Active Substance: ONDANSETRON
  16. MODAFINIL [Concomitant]
     Active Substance: MODAFINIL
  17. MELOXICAM [Concomitant]
     Active Substance: MELOXICAM
  18. PREDNISONE [Concomitant]
     Active Substance: PREDNISONE
  19. OMEPRAZOLE [Concomitant]
     Active Substance: OMEPRAZOLE
  20. HYDROXYCHLOROQUINE SULFATE [Concomitant]
     Active Substance: HYDROXYCHLOROQUINE SULFATE
  21. MAGNESIUM OXIDE [Concomitant]
     Active Substance: MAGNESIUM OXIDE
  22. METOPROLOL SUCCINATE [Concomitant]
     Active Substance: METOPROLOL SUCCINATE
  23. METFORMIN HYDROCHLORIDE [Concomitant]
     Active Substance: METFORMIN HYDROCHLORIDE
  24. MONTELUKAST SODIUM [Concomitant]
     Active Substance: MONTELUKAST SODIUM
  25. POTASSIUM CHLORIDE [Concomitant]
     Active Substance: POTASSIUM CHLORIDE
  26. GABAPENTIN [Concomitant]
     Active Substance: GABAPENTIN
  27. AZELASTINE HYDROCHLORIDE [Concomitant]
     Active Substance: AZELASTINE HYDROCHLORIDE
  28. BUDESONIDE [Concomitant]
     Active Substance: BUDESONIDE
  29. ESTRADIOL [Concomitant]
     Active Substance: ESTRADIOL
  30. DULOXETINE HYDROCHLORIDE [Concomitant]
     Active Substance: DULOXETINE HYDROCHLORIDE
  31. FLUTICASONE PROPIONATE [Concomitant]
     Active Substance: FLUTICASONE PROPIONATE
  32. DORZOLAMIDE [Concomitant]
     Active Substance: DORZOLAMIDE
  33. VERAMYST [Concomitant]
     Active Substance: FLUTICASONE FUROATE
  34. ADDERALL [Concomitant]
     Active Substance: AMPHETAMINE ASPARTATE\AMPHETAMINE SULFATE\DEXTROAMPHETAMINE SACCHARATE\DEXTROAMPHETAMINE SULFATE
  35. FAMOTIDINE [Concomitant]
     Active Substance: FAMOTIDINE
  36. ALBUTEROL SULFATE [Concomitant]
     Active Substance: ALBUTEROL SULFATE
  37. GEMTESA [Concomitant]
     Active Substance: VIBEGRON
  38. FUROSEMIDE [Concomitant]
     Active Substance: FUROSEMIDE
  39. VITAMIN D3 [Concomitant]
     Active Substance: CHOLECALCIFEROL
  40. BENZONATATE [Concomitant]
     Active Substance: BENZONATATE
  41. ATORVASTATIN CALCIUM [Concomitant]
     Active Substance: ATORVASTATIN CALCIUM

REACTIONS (1)
  - Illness [Unknown]
